FAERS Safety Report 14693288 (Version 3)
Quarter: 2018Q3

REPORT INFORMATION
  Report Type: Spontaneous
  Country: AR (occurrence: AR)
  Receive Date: 20180329
  Receipt Date: 20180801
  Transmission Date: 20181010
  Serious: Yes (Other)
  Sender: FDA-Public Use
  Company Number: AR-BAYER-2018-057403

PATIENT
  Age: 21 Year
  Sex: Male

DRUGS (1)
  1. BETAFERON [Suspect]
     Active Substance: INTERFERON BETA-1B
     Indication: MULTIPLE SCLEROSIS
     Dosage: UNK
     Route: 058
     Dates: start: 20050504, end: 2010

REACTIONS (17)
  - Central nervous system lesion [None]
  - Monoparesis [None]
  - Vertigo [None]
  - Optic neuritis [None]
  - Ophthalmoplegia [None]
  - Hemiparaesthesia [None]
  - Gait disturbance [None]
  - Monoparesis [None]
  - Hemiparesis [None]
  - Visual impairment [None]
  - Hemiparesis [None]
  - Expanded disability status scale score increased [None]
  - Trigeminal nerve disorder [None]
  - Visual impairment [Unknown]
  - Demyelination [None]
  - Glossopharyngeal nerve disorder [None]
  - Dizziness [None]

NARRATIVE: CASE EVENT DATE: 20050902
